FAERS Safety Report 24061722 (Version 6)
Quarter: 2024Q3

REPORT INFORMATION
  Report Type: Spontaneous
  Country: IT (occurrence: IT)
  Receive Date: 20240708
  Receipt Date: 20240917
  Transmission Date: 20241017
  Serious: Yes (Hospitalization, Other)
  Sender: PFIZER
  Company Number: None

PATIENT
  Age: 65 Year
  Sex: Male
  Weight: 65 kg

DRUGS (1)
  1. AZITHROMYCIN [Suspect]
     Active Substance: AZITHROMYCIN
     Indication: Lower respiratory tract infection bacterial
     Dosage: 500 MG, 1X/DAY
     Route: 048
     Dates: start: 20240311, end: 20240312

REACTIONS (5)
  - Pulmonary embolism [Recovered/Resolved]
  - Pleural thickening [Recovering/Resolving]
  - Pulmonary infarction [Recovering/Resolving]
  - Dyspnoea [Recovering/Resolving]
  - Pulmonary arterial pressure increased [Unknown]

NARRATIVE: CASE EVENT DATE: 20240301
